FAERS Safety Report 4277994-0 (Version None)
Quarter: 2004Q1

REPORT INFORMATION
  Report Type: 
  Country: None (occurrence: None)
  Receive Date: 20040121
  Receipt Date: 20040105
  Transmission Date: 20041129
  Serious: Yes (Death, Life-Threatening)
  Sender: FDA-Public Use
  Company Number: A02200400053

PATIENT
  Age: 78 Year
  Sex: Female

DRUGS (2)
  1. STILNOX (ZOLPIDEM) - TABLET  - 10 MG [Suspect]
     Dosage: 10 MG ONCE ORAL
     Route: 048
     Dates: start: 20031205, end: 20031205
  2. ATHYMIL - (MIANSERIN HYDROCHLORIDE) [Suspect]
     Dosage: 5 MG ONCE, ORAL
     Route: 048
     Dates: start: 20031205, end: 20031205

REACTIONS (4)
  - BLOOD PRESSURE DECREASED [None]
  - BRADYCARDIA [None]
  - COMA [None]
  - DRUG TOLERANCE DECREASED [None]
